FAERS Safety Report 19274847 (Version 3)
Quarter: 2021Q2

REPORT INFORMATION
  Report Type: Spontaneous
  Country: US (occurrence: US)
  Receive Date: 20210519
  Receipt Date: 20210526
  Transmission Date: 20210717
  Serious: No
  Sender: FDA-Public Use
  Company Number: US-ELI_LILLY_AND_COMPANY-US202105007935

PATIENT
  Age: 68 Year
  Sex: Male

DRUGS (2)
  1. HUMALOG [Suspect]
     Active Substance: INSULIN LISPRO
     Indication: PRODUCT USED FOR UNKNOWN INDICATION
     Dosage: UNK, UNKNOWN
     Route: 058
  2. LYUMJEV [Suspect]
     Active Substance: INSULIN LISPRO-AABC
     Indication: PRODUCT USED FOR UNKNOWN INDICATION
     Dosage: UNK UNK, UNKNOWN
     Route: 058
     Dates: start: 20210513

REACTIONS (9)
  - Blood glucose increased [Recovering/Resolving]
  - Insulin resistance [Unknown]
  - Injection site pain [Recovered/Resolved]
  - Allergic reaction to excipient [Unknown]
  - Infusion site erythema [Recovered/Resolved]
  - Infusion site pain [Not Recovered/Not Resolved]
  - Wrong technique in product usage process [Unknown]
  - Infusion site mass [Recovered/Resolved]
  - Infusion site inflammation [Recovered/Resolved]

NARRATIVE: CASE EVENT DATE: 20210514
